FAERS Safety Report 20890150 (Version 1)
Quarter: 2022Q2

REPORT INFORMATION
  Report Type: Report from Study
  Country: CN (occurrence: CN)
  Receive Date: 20220530
  Receipt Date: 20220530
  Transmission Date: 20220721
  Serious: Yes (Hospitalization)
  Sender: FDA-Public Use
  Company Number: CN-BRISTOL-MYERS SQUIBB COMPANY-BMS-2021-089637

PATIENT
  Age: 74 Year
  Sex: Male

DRUGS (2)
  1. NIVOLUMAB [Suspect]
     Active Substance: NIVOLUMAB
     Indication: Non-small cell lung cancer
     Dosage: 140 MILLIGRAM, Q2WK
     Route: 041
     Dates: start: 20210715
  2. NIVOLUMAB [Suspect]
     Active Substance: NIVOLUMAB
     Indication: Lung neoplasm malignant
     Dosage: 140 MG, Q3W
     Route: 041
     Dates: start: 20211108

REACTIONS (8)
  - Asthenia [Unknown]
  - Dyspnoea [Unknown]
  - Gait inability [Unknown]
  - Discomfort [Unknown]
  - Mouth ulceration [Unknown]
  - Rash [Unknown]
  - Asthma [Unknown]
  - Dermatitis [Unknown]
